FAERS Safety Report 7582813-0 (Version None)
Quarter: 2011Q2

REPORT INFORMATION
  Report Type: 
  Country: None (occurrence: None)
  Receive Date: 20110627
  Receipt Date: 20110627
  Transmission Date: 20111010
  Serious: Yes (Other)
  Sender: FDA-Public Use
  Company Number: None

PATIENT
  Age: 32 Year
  Sex: Female
  Weight: 63.5036 kg

DRUGS (2)
  1. CYMBALTA [Suspect]
     Indication: DEPRESSION
  2. CYMBALTA [Suspect]
     Indication: NEURALGIA

REACTIONS (2)
  - DIPLOPIA [None]
  - VOMITING [None]
